FAERS Safety Report 8987660 (Version 1)
Quarter: 2012Q4

REPORT INFORMATION
  Report Type: 
  Country: US (occurrence: US)
  Receive Date: 20121227
  Receipt Date: 20121227
  Transmission Date: 20130627
  Serious: No
  Sender: FDA-Public Use
  Company Number: US-TEVA-377756USA

PATIENT

DRUGS (1)
  1. PROAIR HFA [Suspect]
     Dosage: 4 puffs per day
     Route: 055

REACTIONS (1)
  - Dyspnoea [Unknown]
